FAERS Safety Report 5403448-1 (Version None)
Quarter: 2007Q3

REPORT INFORMATION
  Report Type: 
  Country: None (occurrence: None)
  Receive Date: 20070730
  Receipt Date: 20070713
  Transmission Date: 20080115
  Serious: Yes (Hospitalization)
  Sender: FDA-Public Use
  Company Number: 2007JP003106

PATIENT
  Sex: Female

DRUGS (6)
  1. TACROLIMUS [Suspect]
     Indication: RHEUMATOID ARTHRITIS
     Dosage: 1 MG, UID/QD, ORAL; 1 MG, UID/QD, ORAL
     Route: 048
     Dates: start: 20060818, end: 20061026
  2. TACROLIMUS [Suspect]
     Indication: RHEUMATOID ARTHRITIS
     Dosage: 1 MG, UID/QD, ORAL; 1 MG, UID/QD, ORAL
     Route: 048
     Dates: start: 20061104
  3. PREDNISOLONE [Suspect]
     Dosage: 5 MG, UID/QD, ORAL
     Route: 048
     Dates: end: 20070713
  4. RIMATIL (BUCILLAMINE) TABLET [Concomitant]
  5. BENET (RISEDRONATE SODIUM) TABLET [Concomitant]
  6. ALFAROL (ALFACALCIDOL) CAPSULE [Concomitant]

REACTIONS (2)
  - NASOPHARYNGITIS [None]
  - PSEUDOMEMBRANOUS COLITIS [None]
